FAERS Safety Report 25277276 (Version 1)
Quarter: 2025Q2

REPORT INFORMATION
  Report Type: Other
  Country: JP (occurrence: JP)
  Receive Date: 20250507
  Receipt Date: 20250507
  Transmission Date: 20250717
  Serious: Yes (Other)
  Sender: CAPLIN STERILES LIMITED
  Company Number: JP-Caplin Steriles Limited-2176311

PATIENT
  Age: 30 Year
  Sex: Male

DRUGS (7)
  1. LEVETIRACETAM [Suspect]
     Active Substance: LEVETIRACETAM
     Indication: Seizure
  2. DIAZEPAM [Concomitant]
     Active Substance: DIAZEPAM
  3. LACOSAMIDE [Concomitant]
     Active Substance: LACOSAMIDE
  4. ACYCLOVIR [Concomitant]
     Active Substance: ACYCLOVIR
  5. Acetated Ringers solution [Concomitant]
  6. VANCOMYCIN HYDROCHLORIDE [Concomitant]
     Active Substance: VANCOMYCIN HYDROCHLORIDE
  7. CEFTRIAXONE [Concomitant]
     Active Substance: CEFTRIAXONE

REACTIONS (1)
  - Rhabdomyolysis [Recovered/Resolved]
